FAERS Safety Report 4889268-5 (Version None)
Quarter: 2006Q1

REPORT INFORMATION
  Report Type: 
  Country: None (occurrence: None)
  Receive Date: 20060124
  Receipt Date: 20060111
  Transmission Date: 20060701
  Serious: Yes (Other)
  Sender: FDA-Public Use
  Company Number: DE-JNJFOC-20051105521

PATIENT
  Sex: Male

DRUGS (2)
  1. CONCERTA [Suspect]
     Indication: DRUG USE FOR UNKNOWN INDICATION
     Route: 048
  2. ENALAPRIL [Concomitant]
     Route: 065

REACTIONS (3)
  - ARRHYTHMIA [None]
  - CONGESTIVE CARDIOMYOPATHY [None]
  - HYPERTENSION [None]
